FAERS Safety Report 18022145 (Version 1)
Quarter: 2020Q3

REPORT INFORMATION
  Report Type: Report from Study
  Country: CA (occurrence: CA)
  Receive Date: 20200715
  Receipt Date: 20200715
  Transmission Date: 20201103
  Serious: Yes (Death, Hospitalization)
  Sender: FDA-Public Use
  Company Number: CA-ROCHE-2638984

PATIENT
  Age: 60 Year

DRUGS (2)
  1. TRASTUZUMAB. [Suspect]
     Active Substance: TRASTUZUMAB
     Indication: PLASMA CELL MYELOMA
     Route: 065
     Dates: start: 20190904
  2. PERTUZUMAB. [Suspect]
     Active Substance: PERTUZUMAB
     Indication: PLASMA CELL MYELOMA
     Route: 065
     Dates: start: 20190904

REACTIONS (1)
  - Malaise [Unknown]

NARRATIVE: CASE EVENT DATE: 20190924
